FAERS Safety Report 10913880 (Version 1)
Quarter: 2015Q1

REPORT INFORMATION
  Report Type: Spontaneous
  Country: US (occurrence: None)
  Receive Date: 20150311
  Receipt Date: 20150311
  Transmission Date: 20150721
  Serious: Yes (Hospitalization, Other)
  Sender: FDA-Public Use
  Company Number: None

PATIENT
  Age: 42 Year
  Sex: Male
  Weight: 74.84 kg

DRUGS (12)
  1. INVANZ [Suspect]
     Active Substance: ERTAPENEM SODIUM
     Indication: PROPHYLAXIS
     Route: 042
     Dates: start: 20150126, end: 20150209
  2. PROTONIX [Concomitant]
     Active Substance: PANTOPRAZOLE SODIUM
  3. ASPIRIN. [Concomitant]
     Active Substance: ASPIRIN
  4. MENS DAILY VITAMIN [Concomitant]
  5. INVANZ [Suspect]
     Active Substance: ERTAPENEM SODIUM
     Indication: CARDIAC OPERATION
     Route: 042
     Dates: start: 20150126, end: 20150209
  6. INVANZ [Suspect]
     Active Substance: ERTAPENEM SODIUM
     Indication: POSTOPERATIVE CARE
     Route: 042
     Dates: start: 20150126, end: 20150209
  7. LEXAPRO [Concomitant]
     Active Substance: ESCITALOPRAM OXALATE
  8. PROCARDIA [Concomitant]
     Active Substance: NIFEDIPINE
  9. DEPAKOTE ER [Concomitant]
     Active Substance: DIVALPROEX SODIUM
  10. COLACE [Concomitant]
     Active Substance: DOCUSATE SODIUM
  11. ALTACE [Concomitant]
     Active Substance: RAMIPRIL
  12. IRON [Concomitant]
     Active Substance: IRON

REACTIONS (4)
  - Fall [None]
  - Head injury [None]
  - Anticonvulsant drug level decreased [None]
  - Seizure [None]

NARRATIVE: CASE EVENT DATE: 20150209
